FAERS Safety Report 8574045-4 (Version None)
Quarter: 2012Q3

REPORT INFORMATION
  Report Type: 
  Country: None (occurrence: None)
  Receive Date: 20120806
  Receipt Date: 20110104
  Transmission Date: 20120928
  Serious: Yes (Death)
  Sender: FDA-Public Use
  Company Number: DE-CELGENEUS-062-21880-12060207

PATIENT
  Age: 76 Year
  Sex: Male
  Weight: 108 kg

DRUGS (11)
  1. COTRIM [Concomitant]
     Indication: INFECTION PROPHYLAXIS
     Route: 065
  2. MELPHALAN HYDROCHLORIDE [Concomitant]
     Route: 065
     Dates: end: 20080601
  3. PAMIDRONATE DISODIUM [Concomitant]
     Route: 065
     Dates: start: 20091123
  4. DEXAMETHASONE [Concomitant]
     Indication: MULTIPLE MYELOMA
     Route: 065
     Dates: start: 20090609, end: 20091116
  5. DEXAMETHASONE [Concomitant]
     Route: 065
     Dates: start: 20090815
  6. DEXAMETHASONE [Concomitant]
     Route: 065
     Dates: start: 20091027
  7. DEXAMETHASONE [Concomitant]
     Route: 065
     Dates: start: 20090926
  8. MELPHALAN HYDROCHLORIDE [Concomitant]
     Indication: MULTIPLE MYELOMA
     Route: 065
     Dates: start: 20080114, end: 20080301
  9. DEXAMETHASONE [Concomitant]
     Route: 065
     Dates: start: 20090313
  10. REVLIMID [Suspect]
     Indication: MULTIPLE MYELOMA
     Route: 048
     Dates: start: 20090609, end: 20091116
  11. ASPIRIN [Concomitant]
     Indication: ANTICOAGULANT THERAPY
     Route: 065

REACTIONS (5)
  - ROAD TRAFFIC ACCIDENT [None]
  - LEUKOPENIA [None]
  - DISEASE PROGRESSION [None]
  - GRANULOCYTOPENIA [None]
  - DRUG INTOLERANCE [None]
